FAERS Safety Report 4431922-3 (Version None)
Quarter: 2004Q3

REPORT INFORMATION
  Report Type: 
  Country: None (occurrence: None)
  Receive Date: 20040818
  Receipt Date: 20040809
  Transmission Date: 20050211
  Serious: Yes (Hospitalization)
  Sender: FDA-Public Use
  Company Number: 206038

PATIENT
  Sex: Female
  Weight: 81.2 kg

DRUGS (20)
  1. XOLAIR [Suspect]
     Indication: ASTHMA
     Dosage: 150 MG, Q4W, SUBCUTANEOUS
     Route: 058
     Dates: start: 20030925, end: 20040401
  2. XOLAIR [Suspect]
     Indication: ASTHMA
     Dosage: 150 MG, Q4W, SUBCUTANEOUS
     Route: 058
     Dates: start: 20040701
  3. RESTORIL [Concomitant]
  4. ACIPHEX [Concomitant]
  5. PEPCID [Concomitant]
  6. COLCHICINE (COLCHICINE) [Concomitant]
  7. XALATAN EYE GTTS. (LATANOPROST) [Concomitant]
  8. ZOLOFT [Concomitant]
  9. MORPHINE PUMP (MORPHINE SULFATE) [Concomitant]
  10. GLUCOPHAGE XR [Concomitant]
  11. PREDNISONE TAB [Concomitant]
  12. ALLEGRA-D (PSEUDOEPHEDRINE HYDROCHLORIDE, FEXOFENADINE HYDROCHLORIDE) [Concomitant]
  13. ADVAIR DISKUS [Concomitant]
  14. WELLBUTRIN [Concomitant]
  15. TRAZODONE (TRAZODONE HYDROCHLORIDE) [Concomitant]
  16. ALENDRONATE (ALENDRONATE SODIUM) [Concomitant]
  17. SINGULAIR [Concomitant]
  18. PROMETHEZINE HCL [Concomitant]
  19. ESTROGENIC HORM SUBSTANCES TAB [Concomitant]
  20. ONDANSETRON HCL (ONDANSETRON HYDROCHLORIDE) [Concomitant]

REACTIONS (8)
  - ASTHMA [None]
  - BODY TEMPERATURE DECREASED [None]
  - CONDITION AGGRAVATED [None]
  - FATIGUE [None]
  - FEELING ABNORMAL [None]
  - HEART RATE INCREASED [None]
  - PNEUMONITIS [None]
  - POOR VENOUS ACCESS [None]
